FAERS Safety Report 11109607 (Version 1)
Quarter: 2015Q2

REPORT INFORMATION
  Report Type: Spontaneous
  Country: US (occurrence: None)
  Receive Date: 20150512
  Receipt Date: 20150512
  Transmission Date: 20150821
  Serious: Yes (Life-Threatening)
  Sender: FDA-Public Use
  Company Number: None

PATIENT
  Age: 50 Year
  Sex: Male
  Weight: 88.45 kg

DRUGS (4)
  1. MAG-AL PLUS [Concomitant]
     Active Substance: ALUMINUM HYDROXIDE\DIMETHICONE\MAGNESIUM HYDROXIDE
  2. BIOTIN [Concomitant]
     Active Substance: BIOTIN
  3. INVEGA [Suspect]
     Active Substance: PALIPERIDONE
     Indication: DEPRESSION
     Dosage: STRENGTH:  6 M.G., QUANTITY:  (1) A DAY, FREQUENCY: BEDTIME, ROUTE:  BY MOUTH
     Route: 048
     Dates: start: 201407, end: 201410
  4. INVEGA [Suspect]
     Active Substance: PALIPERIDONE
     Indication: SCHIZOPHRENIA
     Dosage: STRENGTH:  6 M.G., QUANTITY:  (1) A DAY, FREQUENCY: BEDTIME, ROUTE:  BY MOUTH
     Route: 048
     Dates: start: 201407, end: 201410

REACTIONS (3)
  - Malaise [None]
  - Motor dysfunction [None]
  - Somnolence [None]

NARRATIVE: CASE EVENT DATE: 201407
